FAERS Safety Report 5798735-1 (Version None)
Quarter: 2008Q3

REPORT INFORMATION
  Report Type: 
  Country: None (occurrence: None)
  Receive Date: 20080702
  Receipt Date: 20080625
  Transmission Date: 20090109
  Serious: Yes (Life-Threatening, Hospitalization)
  Sender: FDA-Public Use
  Company Number: BR-ABBOTT-08P-020-0457696-00

PATIENT
  Sex: Female
  Weight: 52.7 kg

DRUGS (5)
  1. RITONAVIR SOFT GELATIN CAPSULES [Suspect]
     Indication: HIV INFECTION
     Route: 048
     Dates: start: 20050413, end: 20080527
  2. TMC 114 [Concomitant]
     Indication: HIV INFECTION
     Route: 048
     Dates: start: 20050413, end: 20080527
  3. ZIDOVUDINE [Concomitant]
     Indication: HIV INFECTION
     Dates: start: 20050412, end: 20080527
  4. DIDANOSINE [Concomitant]
     Indication: HIV INFECTION
     Dates: start: 20050816, end: 20080527
  5. ENFUVIRTIDE [Concomitant]
     Indication: HIV INFECTION
     Dates: start: 20061107, end: 20080527

REACTIONS (2)
  - PORTAL HYPERTENSION [None]
  - UPPER GASTROINTESTINAL HAEMORRHAGE [None]
